FAERS Safety Report 5475152-5 (Version None)
Quarter: 2007Q4

REPORT INFORMATION
  Report Type: 
  Country: None (occurrence: None)
  Receive Date: 20071002
  Receipt Date: 20070920
  Transmission Date: 20080405
  Serious: Yes (Hospitalization, Other)
  Sender: FDA-Public Use
  Company Number: GB-PFIZER INC-2007070940

PATIENT
  Age: 71 Year
  Sex: Male
  Weight: 89 kg

DRUGS (2)
  1. CHAMPIX [Suspect]
     Indication: EX-SMOKER
     Route: 048
     Dates: start: 20070619, end: 20070620
  2. EFFICO [Concomitant]
     Route: 048
     Dates: start: 20070620, end: 20070620

REACTIONS (2)
  - DYSPNOEA [None]
  - PULMONARY OEDEMA [None]
